FAERS Safety Report 13406338 (Version 1)
Quarter: 2017Q2

REPORT INFORMATION
  Report Type: Spontaneous
  Country: HU (occurrence: HU)
  Receive Date: 20170405
  Receipt Date: 20170405
  Transmission Date: 20170830
  Serious: Yes (Other)
  Sender: FDA-Public Use
  Company Number: HU-ALEXION-A201703369

PATIENT
  Age: 18 Month
  Sex: Male
  Weight: 9.6 kg

DRUGS (1)
  1. STRENSIQ [Suspect]
     Active Substance: ASFOTASE ALFA
     Indication: HYPOPHOSPHATASIA
     Dosage: 9 MG/KG, QW (3 TIMES A WEEK)
     Route: 058

REACTIONS (1)
  - Bone fragmentation [Unknown]
